FAERS Safety Report 5095497-0 (Version None)
Quarter: 2006Q3

REPORT INFORMATION
  Report Type: 
  Country: None (occurrence: None)
  Receive Date: 20060901
  Receipt Date: 20060901
  Transmission Date: 20061208
  Serious: Yes (Life-Threatening)
  Sender: FDA-Public Use
  Company Number: None

PATIENT
  Age: 81 Year
  Sex: Female
  Weight: 94.4 kg

DRUGS (9)
  1. CEFAZOLIN [Suspect]
     Dosage: 1 GRAM Q 8 H IV
     Route: 042
     Dates: start: 20060607
  2. BENAZEPRIL HYDROCHLORIDE [Concomitant]
  3. AMIODARONE HCL [Concomitant]
  4. BENADRYL [Concomitant]
  5. RANATIDINE [Concomitant]
  6. CHLOROHEXIDINE WASH [Concomitant]
  7. DEXAMETHASONE TAB [Concomitant]
  8. METOPROLOL TARTRATE [Concomitant]
  9. SOLU-MEDROL [Concomitant]

REACTIONS (6)
  - ANGIONEUROTIC OEDEMA [None]
  - FACE OEDEMA [None]
  - POST PROCEDURAL COMPLICATION [None]
  - PROCEDURAL COMPLICATION [None]
  - RESPIRATORY FAILURE [None]
  - VENOUS OCCLUSION [None]
